FAERS Safety Report 21243602 (Version 3)
Quarter: 2022Q3

REPORT INFORMATION
  Report Type: Spontaneous
  Country: US (occurrence: US)
  Receive Date: 20220823
  Receipt Date: 20220908
  Transmission Date: 20221026
  Serious: Yes (Other)
  Sender: FDA-Public Use
  Company Number: US-BAYER-2022A116926

PATIENT
  Age: 26 Year
  Sex: Female

DRUGS (1)
  1. SKYLA [Suspect]
     Active Substance: LEVONORGESTREL
     Indication: Contraception
     Dosage: 14?G/DAY
     Route: 015
     Dates: start: 201907

REACTIONS (3)
  - Device breakage [Not Recovered/Not Resolved]
  - Complication of device removal [None]
  - Ovarian cyst [Unknown]

NARRATIVE: CASE EVENT DATE: 20220806
